FAERS Safety Report 26144344 (Version 1)
Quarter: 2025Q4

REPORT INFORMATION
  Report Type: Spontaneous
  Country: US (occurrence: US)
  Receive Date: 20251211
  Receipt Date: 20251211
  Transmission Date: 20260118
  Serious: Yes (Other)
  Sender: ALVOGEN
  Company Number: US-ALVOGEN-2025096176

PATIENT
  Sex: Female

DRUGS (3)
  1. LEVOTHYROXINE [Suspect]
     Active Substance: LEVOTHYROXINE
     Indication: Primary hypothyroidism
     Dosage: FOR 6 YEARS
  2. LEVOTHYROXINE [Suspect]
     Active Substance: LEVOTHYROXINE
     Indication: Primary hypothyroidism
     Dosage: 100 MCG
  3. LEVOTHYROXINE [Suspect]
     Active Substance: LEVOTHYROXINE
     Indication: Primary hypothyroidism
     Dosage: 75 MCG (DOSE RECENTLY DECREASED)?STARTED 75TH ON 04-JAN-2025
     Dates: start: 20250104

REACTIONS (4)
  - Palpitations [Unknown]
  - Arrhythmia [Unknown]
  - Product quality issue [Unknown]
  - Presyncope [Unknown]

NARRATIVE: CASE EVENT DATE: 20250101
